FAERS Safety Report 12419709 (Version 1)
Quarter: 2016Q2

REPORT INFORMATION
  Report Type: Spontaneous
  Country: US (occurrence: None)
  Receive Date: 20160527
  Receipt Date: 20160527
  Transmission Date: 20160815
  Serious: No
  Sender: FDA-Public Use
  Company Number: None

PATIENT
  Sex: Male

DRUGS (5)
  1. METOPROLOL. [Suspect]
     Active Substance: METOPROLOL
  2. SIMVASTIN [Suspect]
     Active Substance: SIMVASTATIN
  3. TERAZOSIN [Suspect]
     Active Substance: TERAZOSIN\TERAZOSIN HYDROCHLORIDE
  4. FUROSEMIDE. [Suspect]
     Active Substance: FUROSEMIDE
  5. AMLODIPINE [Suspect]
     Active Substance: AMLODIPINE BESYLATE

REACTIONS (1)
  - Heart rate irregular [None]
